FAERS Safety Report 8051158-7 (Version None)
Quarter: 2012Q1

REPORT INFORMATION
  Report Type: 
  Country: None (occurrence: None)
  Receive Date: 20120117
  Receipt Date: 20120113
  Transmission Date: 20120608
  Serious: Yes (Death, Other)
  Sender: FDA-Public Use
  Company Number: PHHY2012FR002930

PATIENT
  Age: 40 Year
  Sex: Male

DRUGS (1)
  1. CLOZAPINE [Suspect]
     Indication: AGITATION
     Dosage: 300 MG, ONCE

REACTIONS (4)
  - LUNG DISORDER [None]
  - PYREXIA [None]
  - DYSPHAGIA [None]
  - DEATH [None]
